FAERS Safety Report 5773064-0 (Version None)
Quarter: 2008Q2

REPORT INFORMATION
  Report Type: 
  Country: None (occurrence: None)
  Receive Date: 20080611
  Receipt Date: 20080602
  Transmission Date: 20081010
  Serious: Yes (Other)
  Sender: FDA-Public Use
  Company Number: GXKR2008US05050

PATIENT
  Age: 49 Year
  Sex: Male

DRUGS (6)
  1. PREDNISOLONE [Suspect]
     Indication: PEMPHIGUS
     Dosage: 7.5 MG, QD, ORAL; 15 MG, QD
     Route: 048
  2. METHOTREXATE [Suspect]
     Indication: PEMPHIGUS
     Dosage: 12.5 MG, QW, ORAL
     Route: 048
  3. DAPSONE [Suspect]
     Indication: PEMPHIGUS
     Dosage: 50 MG, QD
  4. TRIAMCINOLONE [Concomitant]
  5. RITUXAN [Concomitant]
  6. SODIUM AUROTHIOMALATE (SODIUM AUROTHIOMALATE) [Concomitant]

REACTIONS (3)
  - BLISTER [None]
  - GENITAL DISORDER MALE [None]
  - KAPOSI'S SARCOMA [None]
